FAERS Safety Report 5382539-8 (Version None)
Quarter: 2007Q3

REPORT INFORMATION
  Report Type: 
  Country: None (occurrence: None)
  Receive Date: 20070703
  Receipt Date: 20060629
  Transmission Date: 20080115
  Serious: Yes (Other)
  Sender: FDA-Public Use
  Company Number: 06-000608

PATIENT
  Age: 47 Year
  Sex: Female
  Weight: 57 kg

DRUGS (3)
  1. ESTROSTEP FE [Suspect]
     Indication: MENORRHAGIA
     Dosage: 20-30-35/1000 UG, QD, ORAL
     Route: 048
     Dates: start: 20060220, end: 20060623
  2. LOVENOX [Concomitant]
  3. COUMADIN [Concomitant]

REACTIONS (1)
  - THROMBOSIS [None]
